FAERS Safety Report 5960996-3 (Version None)
Quarter: 2008Q4

REPORT INFORMATION
  Report Type: 
  Country: None (occurrence: None)
  Receive Date: 20081119
  Receipt Date: 20081113
  Transmission Date: 20090506
  Serious: Yes (Death)
  Sender: FDA-Public Use
  Company Number: 2008JP005352

PATIENT
  Age: 2 Month
  Sex: Female

DRUGS (4)
  1. PROGRAF [Suspect]
     Indication: CORD BLOOD TRANSPLANT THERAPY
  2. METHOTREXATE FORMULATION [Concomitant]
  3. FLUDARABINE PHOSPHATE [Concomitant]
  4. L-PAM (MELPHALAN) [Concomitant]

REACTIONS (2)
  - NEUTROPHIL COUNT INCREASED [None]
  - RESPIRATORY SYNCYTIAL VIRUS INFECTION [None]
